FAERS Safety Report 16625672 (Version 1)
Quarter: 2019Q3

REPORT INFORMATION
  Report Type: Spontaneous
  Country: US (occurrence: US)
  Receive Date: 20190724
  Receipt Date: 20190724
  Transmission Date: 20191004
  Serious: No
  Sender: FDA-Public Use
  Company Number: None

PATIENT
  Age: 28 Year
  Sex: Female
  Weight: 60.75 kg

DRUGS (3)
  1. XANAX [Concomitant]
     Active Substance: ALPRAZOLAM
  2. LAMOTRIGINE 200MG TABLETS TAKE 1 TABLET THREE TIMES DAILY [Suspect]
     Active Substance: LAMOTRIGINE
     Indication: BIPOLAR DISORDER
     Dosage: ?          QUANTITY:90 TABLET(S);?
     Route: 048
     Dates: start: 20190610, end: 20190724
  3. ADDERALL [Concomitant]
     Active Substance: AMPHETAMINE ASPARTATE\AMPHETAMINE SULFATE\DEXTROAMPHETAMINE SACCHARATE\DEXTROAMPHETAMINE SULFATE

REACTIONS (10)
  - Depressed mood [None]
  - Anxiety [None]
  - Dizziness [None]
  - Nystagmus [None]
  - Bipolar disorder [None]
  - Panic attack [None]
  - Tachyphrenia [None]
  - Dry mouth [None]
  - Treatment failure [None]
  - Disturbance in attention [None]

NARRATIVE: CASE EVENT DATE: 20190722
